FAERS Safety Report 7481836-X (Version None)
Quarter: 2011Q2

REPORT INFORMATION
  Report Type: 
  Country: None (occurrence: None)
  Receive Date: 20110506
  Receipt Date: 20110502
  Transmission Date: 20111010
  Serious: Yes (Other)
  Sender: FDA-Public Use
  Company Number: USA/USA/11/0018179

PATIENT
  Age: 21 Year
  Sex: Female

DRUGS (4)
  1. TACROLIMUS [Suspect]
     Indication: ORGAN TRANSPLANT
  2. TACROLIMUS [Suspect]
     Indication: IMMUNOSUPPRESSANT DRUG THERAPY
  3. PROGRAF [Concomitant]
     Indication: ORGAN TRANSPLANT
  4. PROGRAF [Concomitant]
     Indication: IMMUNOSUPPRESSANT DRUG THERAPY

REACTIONS (3)
  - PRODUCT QUALITY ISSUE [None]
  - TRANSPLANT REJECTION [None]
  - PRODUCT SUBSTITUTION ISSUE [None]
